FAERS Safety Report 7751412-X (Version None)
Quarter: 2011Q3

REPORT INFORMATION
  Report Type: 
  Country: None (occurrence: None)
  Receive Date: 20110914
  Receipt Date: 20110906
  Transmission Date: 20111222
  Serious: Yes (Other)
  Sender: FDA-Public Use
  Company Number: BR-PFIZER INC-2011208409

PATIENT
  Age: 59 Year
  Sex: Female
  Weight: 76 kg

DRUGS (4)
  1. GINKGO BILOBA [Concomitant]
     Indication: LABYRINTHITIS
     Dosage: ONE TABLET PER DAY, AS NEEDED
  2. XALATAN [Suspect]
     Dosage: UNK
     Route: 047
     Dates: end: 20110901
  3. DINAFLEX [Concomitant]
     Indication: CHONDROPATHY
     Dosage: ONE SACHET PER DAY
     Dates: start: 20050101
  4. LATANOPROST [Suspect]
     Indication: INTRAOCULAR PRESSURE INCREASED
     Dosage: UNK
     Route: 047
     Dates: start: 20110905

REACTIONS (6)
  - INTRAOCULAR PRESSURE INCREASED [None]
  - LABYRINTHITIS [None]
  - HEADACHE [None]
  - PAIN [None]
  - NAUSEA [None]
  - EYE DISORDER [None]
